FAERS Safety Report 8888557 (Version 2)
Quarter: 2012Q4

REPORT INFORMATION
  Report Type: 
  Country: US (occurrence: US)
  Receive Date: 20121106
  Receipt Date: 20121203
  Transmission Date: 20130627
  Serious: Yes (Death)
  Sender: FDA-Public Use
  Company Number: US-TEVA-368283USA

PATIENT
  Sex: Male

DRUGS (3)
  1. CLARAVIS [Suspect]
     Route: 048
     Dates: start: 20120517, end: 20120816
  2. CLARAVIS [Suspect]
     Route: 048
     Dates: start: 201206, end: 20120723
  3. AMNESTEEM [Suspect]
     Dates: start: 20120723, end: 20120816

REACTIONS (1)
  - Completed suicide [Fatal]
